FAERS Safety Report 5640983-5 (Version None)
Quarter: 2008Q1

REPORT INFORMATION
  Report Type: 
  Country: None (occurrence: None)
  Receive Date: 20080227
  Receipt Date: 20080225
  Transmission Date: 20080703
  Serious: Yes (Hospitalization)
  Sender: FDA-Public Use
  Company Number: GR-ASTRAZENECA-2008AC00541

PATIENT
  Age: 48 Year
  Sex: Male

DRUGS (6)
  1. QUETIAPINE FUMARATE [Suspect]
     Indication: PROPHYLAXIS
     Dosage: PRESCRIBED DOSE
  2. QUETIAPINE FUMARATE [Suspect]
     Dosage: ABUSE
  3. CLONAZEPAM [Suspect]
     Indication: ANXIOLYTIC THERAPY
     Dosage: PRESCRIBED DOSE
  4. CLONAZEPAM [Suspect]
     Dosage: ABUSE
  5. CLONAZEPAM [Suspect]
     Dosage: ABUSE
  6. ALCOHOL [Suspect]
     Dosage: BOTTLE OF WHISKEY EVERY 2ND EVENING
     Route: 048

REACTIONS (2)
  - INTENTIONAL DRUG MISUSE [None]
  - INTENTIONAL OVERDOSE [None]
